FAERS Safety Report 7089447-5 (Version None)
Quarter: 2010Q4

REPORT INFORMATION
  Report Type: 
  Country: None (occurrence: None)
  Receive Date: 20101029
  Receipt Date: 20101026
  Transmission Date: 20110411
  Serious: Yes (Other)
  Sender: FDA-Public Use
  Company Number: 2009SP033102

PATIENT
  Age: 23 Year
  Sex: Female
  Weight: 61 kg

DRUGS (5)
  1. PEG-INTRON [Suspect]
     Indication: HEPATITIS C
     Dosage: 60 MCG;QW;SC
     Route: 058
     Dates: start: 20091006, end: 20091013
  2. REBETOL [Suspect]
     Indication: HEPATITIS C
     Dosage: 600 MG;QD;PO
     Route: 048
     Dates: start: 20091006, end: 20091020
  3. BIOFERMIN [Concomitant]
  4. UTEMERIN [Concomitant]
  5. SLOW-FE [Concomitant]

REACTIONS (5)
  - CAESAREAN SECTION [None]
  - DRUG EXPOSURE DURING PREGNANCY [None]
  - GESTATIONAL HYPERTENSION [None]
  - PREGNANCY [None]
  - PREMATURE LABOUR [None]
